FAERS Safety Report 7973560 (Version 2)
Quarter: 2013Q4

REPORT INFORMATION
  Report Type: Spontaneous
  Country: CN (occurrence: CN)
  Receive Date: 20110603
  Receipt Date: 20131128
  Transmission Date: 20140711
  Serious: Yes (Other)
  Sender: FDA-Public Use
  Company Number: CN-JNJFOC-20110411557

PATIENT
  Sex: Male

DRUGS (2)
  1. DAKTARIN [Suspect]
     Route: 061
  2. DAKTARIN [Suspect]
     Indication: TINEA PEDIS
     Route: 061
     Dates: start: 20110419, end: 20110419

REACTIONS (2)
  - Product counterfeit [Unknown]
  - Application site swelling [Not Recovered/Not Resolved]
